FAERS Safety Report 7295441-1 (Version None)
Quarter: 2011Q1

REPORT INFORMATION
  Report Type: 
  Country: None (occurrence: None)
  Receive Date: 20110216
  Receipt Date: 20110129
  Transmission Date: 20110831
  Serious: No
  Sender: FDA-Public Use
  Company Number: US-ABBOTT-11P-163-0701275-00

PATIENT
  Sex: Male
  Weight: 74.91 kg

DRUGS (1)
  1. SIMCOR [Suspect]
     Indication: BLOOD CHOLESTEROL INCREASED
     Dates: start: 20100101

REACTIONS (1)
  - PRURITUS GENERALISED [None]
